FAERS Safety Report 6354445-3 (Version None)
Quarter: 2009Q3

REPORT INFORMATION
  Report Type: 
  Country: None (occurrence: None)
  Receive Date: 20090909
  Receipt Date: 20090825
  Transmission Date: 20100115
  Serious: Yes (Death)
  Sender: FDA-Public Use
  Company Number: AUR-APL-2009-00492

PATIENT
  Sex: Female

DRUGS (3)
  1. SIMVASTATIN [Suspect]
     Dosage: 66 TABLETS, ONCE, ORAL
     Route: 048
  2. ASPIRIN [Concomitant]
  3. IBUPROFEN [Concomitant]

REACTIONS (1)
  - OVERDOSE [None]
